FAERS Safety Report 4387591-4 (Version None)
Quarter: 2004Q2

REPORT INFORMATION
  Report Type: 
  Country: None (occurrence: None)
  Receive Date: 20040630
  Receipt Date: 20040513
  Transmission Date: 20050107
  Serious: No
  Sender: FDA-Public Use
  Company Number: US-GLAXOSMITHKLINE-A0511045A

PATIENT
  Age: 69 Year
  Sex: Male
  Weight: 79.5 kg

DRUGS (3)
  1. ADVAIR HFA [Suspect]
     Indication: DRUG USE FOR UNKNOWN INDICATION
     Route: 055
     Dates: start: 20040101
  2. FLONASE [Concomitant]
     Route: 045
  3. LIPITOR [Concomitant]
     Route: 065

REACTIONS (1)
  - HOARSENESS [None]
